FAERS Safety Report 9745338 (Version 1)
Quarter: 2013Q4

REPORT INFORMATION
  Report Type: Spontaneous
  Country: US (occurrence: None)
  Receive Date: 20131206
  Receipt Date: 20131206
  Transmission Date: 20140711
  Serious: Yes (Other)
  Sender: FDA-Public Use
  Company Number: None

PATIENT
  Age: 62 Year
  Sex: Male
  Weight: 97.52 kg

DRUGS (2)
  1. XANAX [Suspect]
     Indication: ANXIETY
     Route: 048
  2. XANAX [Suspect]
     Indication: SLEEP DISORDER
     Route: 048

REACTIONS (4)
  - Asthenia [None]
  - Fatigue [None]
  - Dyspnoea [None]
  - Palpitations [None]
